FAERS Safety Report 6265932-0 (Version None)
Quarter: 2009Q3

REPORT INFORMATION
  Report Type: 
  Country: None (occurrence: None)
  Receive Date: 20090713
  Receipt Date: 20090707
  Transmission Date: 20100115
  Serious: Yes (Life-Threatening)
  Sender: FDA-Public Use
  Company Number: US-CELGENEUS-163-21880-09070504

PATIENT
  Age: 57 Year
  Sex: Male
  Weight: 68.8 kg

DRUGS (2)
  1. REVLIMID [Suspect]
     Indication: MULTIPLE MYELOMA
     Route: 048
     Dates: start: 20090616, end: 20090629
  2. RAD 001 [Suspect]
     Indication: MULTIPLE MYELOMA
     Route: 048
     Dates: start: 20090616, end: 20090629

REACTIONS (2)
  - NEUTROPHIL COUNT DECREASED [None]
  - PLATELET COUNT DECREASED [None]
